FAERS Safety Report 9028480 (Version 1)
Quarter: 2013Q1

REPORT INFORMATION
  Report Type: Spontaneous
  Country: IN (occurrence: IN)
  Receive Date: 20130124
  Receipt Date: 20130124
  Transmission Date: 20140127
  Serious: Yes (Other)
  Sender: FDA-Public Use
  Company Number: IN-BAYER-2013-006025

PATIENT
  Age: 32 Year
  Sex: Male

DRUGS (4)
  1. DACARBAZINE [Suspect]
     Indication: HODGKIN^S DISEASE RECURRENT
     Dosage: 6 CYCLES OF ABVD (DOSING NOS)
     Dates: start: 1994
  2. ADRIAMYCIN [Suspect]
     Indication: HODGKIN^S DISEASE RECURRENT
     Dosage: 6 CYCLES OF ABVD (DOSING NOS)
     Dates: start: 1994
  3. BLEOMYCIN [Suspect]
     Indication: HODGKIN^S DISEASE RECURRENT
     Dosage: 6 CYCLES OF ABVD (DOSING NOS)
     Dates: start: 1994
  4. VINBLASTINE [Suspect]
     Indication: HODGKIN^S DISEASE RECURRENT
     Dosage: 6 CYCLES OF ABVD (DOSING NOS)
     Dates: start: 1994

REACTIONS (1)
  - Malignant fibrous histiocytoma [Unknown]
